FAERS Safety Report 12632028 (Version 2)
Quarter: 2016Q3

REPORT INFORMATION
  Report Type: Spontaneous
  Country: US (occurrence: US)
  Receive Date: 20160808
  Receipt Date: 20160808
  Transmission Date: 20161109
  Serious: No
  Sender: FDA-Public Use
  Company Number: US-BEH-2016061688

PATIENT
  Sex: Female
  Weight: 46 kg

DRUGS (14)
  1. ACETAMINOPHEN. [Concomitant]
     Active Substance: ACETAMINOPHEN
  2. METHOTREXATE. [Concomitant]
     Active Substance: METHOTREXATE
  3. MULTIVITAMINS [Concomitant]
     Active Substance: VITAMINS
  4. VENTOLIN [Concomitant]
     Active Substance: ALBUTEROL SULFATE
  5. HIZENTRA [Suspect]
     Active Substance: HUMAN IMMUNOGLOBULIN G
     Route: 058
  6. ATIVAN [Concomitant]
     Active Substance: LORAZEPAM
  7. TOPAMAX [Concomitant]
     Active Substance: TOPIRAMATE
  8. HIZENTRA [Suspect]
     Active Substance: HUMAN IMMUNOGLOBULIN G
     Indication: IMMUNODEFICIENCY COMMON VARIABLE
     Route: 058
  9. DIPHENHYDRAMINE. [Concomitant]
     Active Substance: DIPHENHYDRAMINE
  10. HIZENTRA [Suspect]
     Active Substance: HUMAN IMMUNOGLOBULIN G
     Route: 058
  11. EPIPEN [Concomitant]
     Active Substance: EPINEPHRINE
  12. LEXAPRO [Concomitant]
     Active Substance: ESCITALOPRAM OXALATE
  13. LIDOCAINE. [Concomitant]
     Active Substance: LIDOCAINE
  14. LEUCOVORIN. [Concomitant]
     Active Substance: LEUCOVORIN

REACTIONS (4)
  - Diarrhoea [Unknown]
  - Pain [Unknown]
  - Chills [Unknown]
  - Headache [Unknown]
